FAERS Safety Report 11718495 (Version 2)
Quarter: 2016Q1

REPORT INFORMATION
  Report Type: Spontaneous
  Country: FR (occurrence: FR)
  Receive Date: 20151110
  Receipt Date: 20160128
  Transmission Date: 20160525
  Serious: Yes (Other)
  Sender: FDA-Public Use
  Company Number: FR-PAR PHARMACEUTICAL COMPANIES-2015SCPR014472

PATIENT

DRUGS (5)
  1. LEVOMEPROMAZINE [Concomitant]
     Active Substance: LEVOMEPROMAZINE
     Indication: PSYCHOTIC DISORDER
     Dosage: 300 MG, / DAY
     Route: 065
     Dates: start: 2013, end: 201408
  2. RISPERIDONE. [Suspect]
     Active Substance: RISPERIDONE
     Indication: PSYCHOTIC DISORDER
     Dosage: UNK, UNKNOWN
     Route: 048
     Dates: start: 2013, end: 201408
  3. LEVOMEPROMAZINE [Concomitant]
     Active Substance: LEVOMEPROMAZINE
     Dosage: 300 MG, / DAY
     Route: 065
     Dates: start: 2014, end: 2014
  4. RISPERIDONE. [Suspect]
     Active Substance: RISPERIDONE
     Dosage: 4 MG, / DAY
     Route: 048
     Dates: start: 2014, end: 2014
  5. LOXAPINE. [Suspect]
     Active Substance: LOXAPINE
     Indication: PSYCHOTIC DISORDER
     Dosage: 400 MG, / DAY
     Route: 065
     Dates: start: 2014, end: 2014

REACTIONS (5)
  - Condition aggravated [Recovering/Resolving]
  - Psychotic disorder [Recovering/Resolving]
  - Rhabdomyolysis [Recovered/Resolved]
  - Deep vein thrombosis [Recovering/Resolving]
  - Renal tubular necrosis [Recovering/Resolving]

NARRATIVE: CASE EVENT DATE: 2014
